FAERS Safety Report 8348820-5 (Version None)
Quarter: 2012Q2

REPORT INFORMATION
  Report Type: 
  Country: None (occurrence: None)
  Receive Date: 20120508
  Receipt Date: 20120503
  Transmission Date: 20120825
  Serious: Yes (Hospitalization, Other)
  Sender: FDA-Public Use
  Company Number: 2012SP006668

PATIENT
  Age: 23 Year
  Sex: Female
  Weight: 70.3075 kg

DRUGS (1)
  1. NUVARING [Suspect]
     Indication: CONTRACEPTION
     Dates: start: 20040401, end: 20060910

REACTIONS (12)
  - NERVE COMPRESSION [None]
  - WHITE BLOOD CELL COUNT INCREASED [None]
  - THROMBOSIS [None]
  - APPENDICITIS [None]
  - NECK PAIN [None]
  - PULMONARY EMBOLISM [None]
  - ROAD TRAFFIC ACCIDENT [None]
  - LIGAMENT SPRAIN [None]
  - MUSCULOSKELETAL PAIN [None]
  - EXCORIATION [None]
  - FALL [None]
  - HEADACHE [None]
